FAERS Safety Report 6294069-X (Version None)
Quarter: 2009Q3

REPORT INFORMATION
  Report Type: 
  Country: None (occurrence: None)
  Receive Date: 20090803
  Receipt Date: 20080915
  Transmission Date: 20100115
  Serious: No
  Sender: FDA-Public Use
  Company Number: A0748072A

PATIENT
  Age: 52 Year
  Sex: Female

DRUGS (2)
  1. NICORETTE [Suspect]
  2. NICORETTE [Suspect]

REACTIONS (5)
  - ABDOMINAL DISTENSION [None]
  - ABDOMINAL PAIN UPPER [None]
  - FLATULENCE [None]
  - INTENTIONAL DRUG MISUSE [None]
  - METAL POISONING [None]
